FAERS Safety Report 14295950 (Version 19)
Quarter: 2018Q3

REPORT INFORMATION
  Report Type: Spontaneous
  Country: DE (occurrence: DE)
  Receive Date: 20171218
  Receipt Date: 20180810
  Transmission Date: 20181010
  Serious: Yes (Death, Hospitalization, Disabling, Other)
  Sender: FDA-Public Use
  Company Number: PHHY2017DE187546

PATIENT
  Age: 78 Year
  Sex: Male

DRUGS (48)
  1. SPIRIVA [Suspect]
     Active Substance: TIOTROPIUM BROMIDE MONOHYDRATE
     Dosage: UNK UNK,UNK
     Route: 065
     Dates: start: 20160101
  2. RISPERIDONE. [Concomitant]
     Active Substance: RISPERIDONE
     Indication: PRODUCT USED FOR UNKNOWN INDICATION
     Dosage: UNK
     Route: 065
  3. PAROXETINE. [Suspect]
     Active Substance: PAROXETINE
     Indication: AGGRESSION
  4. QUETIAPINE FUMARATE. [Suspect]
     Active Substance: QUETIAPINE FUMARATE
     Indication: DELIRIUM
  5. DEXTROMETHORPHAN HYDROBROMIDE. [Suspect]
     Active Substance: DEXTROMETHORPHAN HYDROBROMIDE
     Indication: AGITATION
     Dosage: 24 MG,QD
     Route: 065
     Dates: start: 20170101
  6. FLUPENTIXOL [Suspect]
     Active Substance: FLUPENTIXOL
     Indication: PARANOIA
  7. DONEPEZIL. [Concomitant]
     Active Substance: DONEPEZIL
     Indication: AGGRESSION
     Dosage: UNK
     Route: 065
  8. FORMOTEROL FUMARATE SANDOZ [Suspect]
     Active Substance: FORMOTEROL FUMARATE
     Indication: PNEUMONIA
     Dosage: UNK UNK, QD
     Route: 065
     Dates: start: 201601
  9. LORAZEPAM. [Suspect]
     Active Substance: LORAZEPAM
     Indication: DEMENTIA WITH LEWY BODIES
     Dosage: 1 DF, QD
     Route: 065
     Dates: start: 20160101
  10. FLUPENTIXOL [Suspect]
     Active Substance: FLUPENTIXOL
     Indication: PNEUMONIA
  11. FLUPENTIXOL [Suspect]
     Active Substance: FLUPENTIXOL
     Indication: POOR QUALITY SLEEP
  12. DRONABINOL. [Suspect]
     Active Substance: DRONABINOL
     Dosage: 15 MG,QD
     Route: 065
     Dates: start: 20160101
  13. TRAZODONE [Concomitant]
     Active Substance: TRAZODONE HYDROCHLORIDE
     Indication: AGGRESSION
     Dosage: UNK, (HIGH DOSE)
     Route: 065
  14. AMISULPRIDE [Concomitant]
     Active Substance: AMISULPRIDE
     Indication: PRODUCT USED FOR UNKNOWN INDICATION
     Dosage: UNK
     Route: 065
  15. ZUCLOPENTHIXOL [Concomitant]
     Active Substance: ZUCLOPENTHIXOL
     Indication: PRODUCT USED FOR UNKNOWN INDICATION
     Route: 065
  16. QUETIAPINE FUMARATE. [Suspect]
     Active Substance: QUETIAPINE FUMARATE
     Indication: DEMENTIA WITH LEWY BODIES
     Dosage: UNK UNK, QD
     Route: 048
     Dates: start: 20160101
  17. LORAZEPAM. [Suspect]
     Active Substance: LORAZEPAM
     Indication: DELIRIUM
     Dosage: UNK UNK,QD
     Route: 065
     Dates: start: 20160101
  18. RIVASTIGMINE. [Concomitant]
     Active Substance: RIVASTIGMINE
     Indication: DEMENTIA WITH LEWY BODIES
     Dosage: UNK UNK,QD
     Route: 065
  19. CLOZAPINE. [Concomitant]
     Active Substance: CLOZAPINE
     Indication: PRODUCT USED FOR UNKNOWN INDICATION
     Dosage: UNK
     Route: 065
  20. BENPERIDOL [Concomitant]
     Active Substance: BENPERIDOL
     Indication: PRODUCT USED FOR UNKNOWN INDICATION
     Dosage: UNK
     Route: 065
  21. AMPICILLIN AND SULBACTAM [Suspect]
     Active Substance: AMPICILLIN SODIUM\SULBACTAM SODIUM
     Indication: PNEUMONIA
     Dosage: UNK UNK,UNK
     Route: 065
     Dates: start: 20160101
  22. FLUPENTIXOL [Suspect]
     Active Substance: FLUPENTIXOL
     Indication: AGGRESSION
     Dosage: UNK UNK,UNK
     Route: 048
  23. FLUPENTIXOL [Suspect]
     Active Substance: FLUPENTIXOL
     Indication: AGITATION
  24. DRONABINOL. [Suspect]
     Active Substance: DRONABINOL
     Indication: DELIRIUM
     Dosage: 15 MG, QD
     Route: 065
     Dates: start: 2016
  25. RIVASTIGMINE. [Concomitant]
     Active Substance: RIVASTIGMINE
     Indication: AGGRESSION
     Dosage: AS HIGH AS TOLERATED BY THE PATIENT
     Route: 065
  26. RIVASTIGMINE. [Concomitant]
     Active Substance: RIVASTIGMINE
     Indication: DELIRIUM
     Dosage: 1 DF, UNK
     Route: 065
  27. DIAZEPAM. [Concomitant]
     Active Substance: DIAZEPAM
     Indication: DELIRIUM
  28. MIRTAZAPINE. [Concomitant]
     Active Substance: MIRTAZAPINE
     Indication: AGGRESSION
     Dosage: UNK, (HIGH DOSE)
     Route: 065
  29. MIRTAZAPINE. [Concomitant]
     Active Substance: MIRTAZAPINE
     Indication: DELIRIUM
  30. ARIPIPRAZOLE. [Concomitant]
     Active Substance: ARIPIPRAZOLE
     Indication: PRODUCT USED FOR UNKNOWN INDICATION
     Dosage: UNK
     Route: 065
  31. QUETIAPINE FUMARATE. [Suspect]
     Active Substance: QUETIAPINE FUMARATE
     Indication: AGITATION
     Dosage: 150 MG,QD
     Route: 048
     Dates: start: 20160101
  32. FLUPENTIXOL [Suspect]
     Active Substance: FLUPENTIXOL
     Indication: DELIRIUM
     Dosage: 20 MG,QD
     Route: 048
  33. DRONABINOL. [Suspect]
     Active Substance: DRONABINOL
     Indication: AGGRESSION
     Dosage: 2.5 MG, QD
     Route: 065
     Dates: start: 2016
  34. TRAZODONE [Concomitant]
     Active Substance: TRAZODONE HYDROCHLORIDE
     Indication: DELIRIUM
  35. DONEPEZIL. [Concomitant]
     Active Substance: DONEPEZIL
     Indication: DELIRIUM
     Dosage: UNK UNK,UNK
     Route: 065
  36. PIPAMPERONE [Concomitant]
     Active Substance: PIPAMPERONE
     Indication: PRODUCT USED FOR UNKNOWN INDICATION
     Dosage: UNK
     Route: 065
  37. CARBAMAZEPINE. [Concomitant]
     Active Substance: CARBAMAZEPINE
     Dosage: UNK UNK,UNK
     Route: 065
  38. DEXTROMETHORPHAN HYDROBROMIDE. [Suspect]
     Active Substance: DEXTROMETHORPHAN HYDROBROMIDE
     Indication: DELIRIUM
     Dosage: 40 MG, DIVIDED INTO 2 DOSAGES
     Route: 065
     Dates: start: 2017
  39. FLUPENTIXOL [Suspect]
     Active Substance: FLUPENTIXOL
     Indication: DEMENTIA WITH LEWY BODIES
  40. FLUPENTIXOL [Suspect]
     Active Substance: FLUPENTIXOL
     Indication: HANGOVER
  41. SPIRIVA [Suspect]
     Active Substance: TIOTROPIUM BROMIDE MONOHYDRATE
     Indication: PNEUMONIA
     Dosage: UNK
     Route: 065
  42. DRONABINOL. [Suspect]
     Active Substance: DRONABINOL
     Dosage: UNK UNK,UNK
     Route: 065
  43. DIAZEPAM. [Concomitant]
     Active Substance: DIAZEPAM
     Indication: AGGRESSION
     Dosage: UNK, (HIGH DOSE)
     Route: 065
  44. PAROXETINE. [Suspect]
     Active Substance: PAROXETINE
     Indication: DELIRIUM
     Dosage: 10 MG, UNK
     Route: 065
     Dates: start: 2017
  45. QUETIAPINE FUMARATE. [Suspect]
     Active Substance: QUETIAPINE FUMARATE
     Indication: AGGRESSION
     Dosage: 100 MG,QD
     Route: 048
     Dates: start: 20170101
  46. DEXTROMETHORPHAN HYDROBROMIDE. [Suspect]
     Active Substance: DEXTROMETHORPHAN HYDROBROMIDE
     Indication: AGGRESSION
     Dosage: DOSE INCREASED, TWO DIVIDED DOSES;
     Route: 065
  47. DRONABINOL. [Suspect]
     Active Substance: DRONABINOL
     Dosage: 2.5 MG,QD
     Route: 065
     Dates: start: 20160101
  48. CARBAMAZEPINE. [Concomitant]
     Active Substance: CARBAMAZEPINE
     Indication: PRODUCT USED FOR UNKNOWN INDICATION
     Dosage: UNK
     Route: 065

REACTIONS (14)
  - Rebound effect [Fatal]
  - Sleep disorder [Fatal]
  - Off label use [Fatal]
  - Delirium [Fatal]
  - Condition aggravated [Fatal]
  - Product use in unapproved indication [Fatal]
  - Hangover [Fatal]
  - Paranoia [Fatal]
  - Completed suicide [Fatal]
  - Aggression [Fatal]
  - Agitation [Fatal]
  - Paradoxical drug reaction [Fatal]
  - Withdrawal syndrome [Fatal]
  - Fatigue [Fatal]
